FAERS Safety Report 26023228 (Version 1)
Quarter: 2025Q4

REPORT INFORMATION
  Report Type: Spontaneous
  Country: US (occurrence: US)
  Receive Date: 20251110
  Receipt Date: 20251110
  Transmission Date: 20260118
  Serious: No
  Sender: SANOFI AVENTIS
  Company Number: US-SA-2025SA333319

PATIENT
  Sex: Female
  Weight: 51.27 kg

DRUGS (1)
  1. DUPIXENT [Suspect]
     Active Substance: DUPILUMAB
     Indication: Urticaria
     Dosage: 200 MG, QOW
     Route: 058

REACTIONS (4)
  - Hand dermatitis [Unknown]
  - Inflammation [Unknown]
  - Pain [Unknown]
  - Product use in unapproved indication [Unknown]
